FAERS Safety Report 6743141-6 (Version None)
Quarter: 2010Q2

REPORT INFORMATION
  Report Type: 
  Country: None (occurrence: None)
  Receive Date: 20100527
  Receipt Date: 20100518
  Transmission Date: 20101027
  Serious: Yes (Other)
  Sender: FDA-Public Use
  Company Number: PHHY2010FR32783

PATIENT
  Age: 53 Year
  Sex: Male

DRUGS (1)
  1. RASILEZ [Suspect]
     Dosage: 150 MG
     Dates: start: 20100302, end: 20100510

REACTIONS (2)
  - PRURITUS [None]
  - RASH GENERALISED [None]
